FAERS Safety Report 21664761 (Version 1)
Quarter: 2022Q4

REPORT INFORMATION
  Report Type: Spontaneous
  Country: PH (occurrence: PH)
  Receive Date: 20221130
  Receipt Date: 20221130
  Transmission Date: 20230112
  Serious: Yes (Life-Threatening)
  Sender: FDA-Public Use
  Company Number: PH-BAYER-2022P024291

PATIENT
  Age: 24 Year
  Sex: Female
  Weight: 30 kg

DRUGS (2)
  1. ULTRAVIST [Suspect]
     Active Substance: IOPROMIDE
     Indication: Scan with contrast
     Dosage: 300 ML, ONCE
     Route: 042
     Dates: start: 20221125, end: 20221125
  2. ULTRAVIST [Suspect]
     Active Substance: IOPROMIDE
     Indication: Pulmonary mass

REACTIONS (6)
  - Dyspnoea [None]
  - Chest discomfort [None]
  - Pallor [None]
  - Hyperhidrosis [None]
  - Presyncope [None]
  - Hypotension [None]

NARRATIVE: CASE EVENT DATE: 20221125
